FAERS Safety Report 21169462 (Version 4)
Quarter: 2022Q3

REPORT INFORMATION
  Report Type: Spontaneous
  Country: IT (occurrence: IT)
  Receive Date: 20220804
  Receipt Date: 20220929
  Transmission Date: 20221027
  Serious: Yes (Disabling, Other)
  Sender: FDA-Public Use
  Company Number: IT-JNJFOC-20220731548

PATIENT
  Age: 65 Year
  Sex: Female
  Weight: 58 kg

DRUGS (7)
  1. SILDENAFIL [Suspect]
     Active Substance: SILDENAFIL
     Indication: Pulmonary arterial hypertension
     Dosage: 20 MILLIGRAM, ONCE A DAY
     Route: 048
  2. SILDENAFIL [Suspect]
     Active Substance: SILDENAFIL
     Dosage: 40 MILLIGRAM, ONCE A DAY
     Route: 048
     Dates: start: 201806
  3. TADALAFIL [Suspect]
     Active Substance: TADALAFIL
     Indication: Pulmonary arterial hypertension
     Dosage: 20 MILLIGRAM, TWO TIMES A DAY
     Route: 065
  4. TADALAFIL [Suspect]
     Active Substance: TADALAFIL
     Dosage: 40 MILLIGRAM, TWO TIMES A DAY
     Route: 065
     Dates: start: 201806
  5. OPSUMIT [Suspect]
     Active Substance: MACITENTAN
     Indication: Pulmonary arterial hypertension
     Dosage: 10 MILLIGRAM, ONCE A DAY
     Route: 048
     Dates: start: 201806
  6. SELEXIPAG [Suspect]
     Active Substance: SELEXIPAG
     Indication: Pulmonary arterial hypertension
     Dosage: 400 MICROGRAM, TWO TIMES A DAY
     Route: 048
  7. SELEXIPAG [Suspect]
     Active Substance: SELEXIPAG
     Dosage: 600 MICROGRAM, TWO TIMES A DAY
     Route: 048
     Dates: start: 20220601

REACTIONS (3)
  - Pulmonary veno-occlusive disease [Recovered/Resolved]
  - Dyspnoea [Recovering/Resolving]
  - Oxygen saturation decreased [Unknown]

NARRATIVE: CASE EVENT DATE: 20220711
